FAERS Safety Report 8348852-7 (Version None)
Quarter: 2012Q2

REPORT INFORMATION
  Report Type: 
  Country: None (occurrence: None)
  Receive Date: 20120508
  Receipt Date: 20120426
  Transmission Date: 20120825
  Serious: Yes (Hospitalization, Other)
  Sender: FDA-Public Use
  Company Number: 2011MA001429

PATIENT
  Sex: Male
  Weight: 113.3993 kg

DRUGS (31)
  1. METOCLOPRAMIDE [Suspect]
     Indication: IMPAIRED GASTRIC EMPTYING
     Dosage: 10 MG; 2 TABS TID; PO
     Route: 048
     Dates: start: 20070121, end: 20081113
  2. BUPROPION HYDROCHLORIDE [Concomitant]
  3. CEPHALEXIN [Concomitant]
  4. LASOPRAZOLE [Concomitant]
  5. CLARITHROMYCIN [Concomitant]
  6. HYDROCODONE BITARTRATE AND ACETAMINOPHEN [Concomitant]
  7. LYRICA [Concomitant]
  8. MARIJUANA [Concomitant]
  9. ACETAMINOPHEN [Concomitant]
  10. HUMULIN R [Concomitant]
  11. JANUVIA [Concomitant]
  12. LANTUS [Concomitant]
  13. TRAMADOL HYDROCHLORIDE [Concomitant]
  14. TRAZODONE HCL [Concomitant]
  15. AMOXICILLIN [Concomitant]
  16. DOXAZONSIN [Concomitant]
  17. PREVACID [Concomitant]
  18. PROPRANOLOL [Concomitant]
  19. PROTONIX [Concomitant]
  20. VIAGRA [Concomitant]
  21. LEXAPRO [Concomitant]
  22. GEODON [Concomitant]
  23. LOVENOX [Concomitant]
  24. NEXIUM [Concomitant]
  25. VICODIN [Concomitant]
  26. CODEINE [Concomitant]
  27. WARFARIN SODIUM [Concomitant]
  28. APIDRA [Concomitant]
  29. COUMADIN [Concomitant]
  30. DOC-Q-LACE [Concomitant]
  31. GLARGINE [Concomitant]

REACTIONS (22)
  - PORTAL HYPERTENSION [None]
  - STRABISMUS [None]
  - ECONOMIC PROBLEM [None]
  - DEPRESSION [None]
  - HYPERTENSION [None]
  - DYSKINESIA [None]
  - EXCESSIVE EYE BLINKING [None]
  - EMOTIONAL DISORDER [None]
  - FATIGUE [None]
  - CHOLELITHIASIS [None]
  - TARDIVE DYSKINESIA [None]
  - ARTHRALGIA [None]
  - DEEP VEIN THROMBOSIS [None]
  - PERIARTHRITIS [None]
  - DIZZINESS [None]
  - VARICES OESOPHAGEAL [None]
  - SUICIDAL IDEATION [None]
  - DIABETES MELLITUS [None]
  - NOCTURIA [None]
  - ABDOMINAL PAIN UPPER [None]
  - PNEUMONIA [None]
  - TREATMENT NONCOMPLIANCE [None]
